FAERS Safety Report 6059573-8 (Version None)
Quarter: 2009Q1

REPORT INFORMATION
  Report Type: 
  Country: None (occurrence: None)
  Receive Date: 20090127
  Receipt Date: 20090127
  Transmission Date: 20090719
  Serious: Yes (Other)
  Sender: FDA-Public Use
  Company Number: None

PATIENT
  Age: 42 Year
  Sex: Female
  Weight: 68.0396 kg

DRUGS (2)
  1. CHANTIX [Suspect]
     Indication: SMOKING CESSATION THERAPY
     Dosage: I TABLETFIRST 3 DAY/ 2DAY 7 DAYS PO
     Route: 048
     Dates: start: 20071021, end: 20071027
  2. CHANTIX [Suspect]
     Indication: SMOKING CESSATION THERAPY
     Dosage: 2 TABLETS TWICE A DAY 6 WEEKS PO
     Route: 048
     Dates: start: 20071027, end: 20071201

REACTIONS (1)
  - AMNESIA [None]
